FAERS Safety Report 23371351 (Version 2)
Quarter: 2024Q1

REPORT INFORMATION
  Report Type: Report from Study
  Country: CN (occurrence: CN)
  Receive Date: 20240105
  Receipt Date: 20240117
  Transmission Date: 20240410
  Serious: No
  Sender: FDA-Public Use
  Company Number: CN-PFIZER INC-PV202400000011

PATIENT
  Age: 88 Year
  Sex: Male

DRUGS (61)
  1. NIRMATRELVIR\RITONAVIR [Suspect]
     Active Substance: NIRMATRELVIR\RITONAVIR
     Indication: COVID-19 treatment
     Dosage: [NIRMATRELVIR 300 MG]/[RITONAVIR 100 MG], 2X/DAY, NASAL FEEDING
     Dates: start: 20220524, end: 20220528
  2. NIRMATRELVIR\RITONAVIR [Suspect]
     Active Substance: NIRMATRELVIR\RITONAVIR
     Dosage: [NIRMATRELVIR 300 MG]/[RITONAVIR 100 MG], 2X/DAY, NASAL FEEDING
     Dates: start: 20220529, end: 20220603
  3. ATORVASTATIN [Concomitant]
     Active Substance: ATORVASTATIN
     Indication: Blood cholesterol increased
     Dosage: UNK
     Route: 048
     Dates: start: 20220522, end: 20220523
  4. LOSARTAN [Concomitant]
     Active Substance: LOSARTAN
     Indication: Airway complication of anaesthesia
     Dosage: UNK
     Route: 048
     Dates: start: 20220522, end: 20220523
  5. AMLODIPINE BESYLATE [Concomitant]
     Active Substance: AMLODIPINE BESYLATE
     Indication: Airway complication of anaesthesia
     Dosage: LOHOXI AMLODIPINE BESYLATE TABLETS
     Dates: start: 20220522, end: 20220523
  6. CLOPIDOGREL [Concomitant]
     Active Substance: CLOPIDOGREL BISULFATE
     Indication: Anticoagulant therapy
     Dosage: UNK
     Route: 048
     Dates: start: 20220522, end: 20220523
  7. THYMUS [THYMUS SPP.] [Concomitant]
     Indication: Immunomodulatory therapy
     Dosage: THYMUS FASIN FOR INJECTION
     Route: 058
     Dates: start: 20220522, end: 20220523
  8. HUMAN IMMUNOGLOBULIN G [Concomitant]
     Active Substance: HUMAN IMMUNOGLOBULIN G
     Indication: Immunomodulatory therapy
     Dosage: UNK INTRAVENOUS INJECTION
     Route: 050
     Dates: start: 20220522, end: 20220523
  9. CEFTRIAXONE SODIUM [Concomitant]
     Active Substance: CEFTRIAXONE SODIUM
     Indication: Anti-infective therapy
     Dosage: CEFTRIAXONE SODIUM FOR INJECTION ROCHEFEN
     Route: 050
     Dates: start: 20220522, end: 20220523
  10. INTERFERON ALFA-2B [Concomitant]
     Active Substance: INTERFERON ALFA-2B
     Indication: Antiviral treatment
     Dosage: HUMAN INTERFERON ALFA2B SPRAY
     Route: 045
     Dates: start: 20220523, end: 20220523
  11. OMEPRAZOLE [Concomitant]
     Active Substance: OMEPRAZOLE
     Indication: Gastrointestinal disorder prophylaxis
     Dosage: UNK
     Dates: start: 20220523, end: 20220523
  12. METHYLPREDNISOLONE SODIUM SUCCINATE [Concomitant]
     Active Substance: METHYLPREDNISOLONE SODIUM SUCCINATE
     Indication: Inflammation
     Dosage: UNK
     Route: 050
     Dates: start: 20220523, end: 20220523
  13. AMBROXOL HYDROCHLORIDE [Concomitant]
     Active Substance: AMBROXOL HYDROCHLORIDE
     Indication: Productive cough
     Dosage: UNK
     Route: 042
     Dates: start: 20220523, end: 20220523
  14. VITAMIN C [Concomitant]
     Active Substance: ASCORBIC ACID
     Indication: Vitamin supplementation
     Dosage: UNK
     Route: 050
     Dates: start: 20220523, end: 20220523
  15. CEFTAZIDIME [Concomitant]
     Active Substance: CEFTAZIDIME
     Indication: Anti-infective therapy
     Dosage: UNK
     Route: 050
     Dates: start: 20220523, end: 20220523
  16. CEFTAZIDIME [Concomitant]
     Active Substance: CEFTAZIDIME
     Dosage: UNK
     Route: 050
     Dates: start: 20220523, end: 20220523
  17. BUTYLPHTHALIDE [Concomitant]
     Active Substance: BUTYLPHTHALIDE
     Indication: Metabolic disorder
     Dosage: UNK
     Route: 050
     Dates: start: 20220523, end: 20220523
  18. HERBALS [Concomitant]
     Active Substance: HERBALS
     Indication: Cardiovascular disorder
     Dosage: UNK
     Route: 050
     Dates: start: 20220523, end: 20220523
  19. LANSOPRAZOLE [Concomitant]
     Active Substance: LANSOPRAZOLE
     Indication: Gastrointestinal disorder prophylaxis
     Dosage: UNK
     Route: 042
     Dates: start: 20220523, end: 20220526
  20. NADROPARIN [Concomitant]
     Active Substance: NADROPARIN
     Indication: Anticoagulant therapy
     Dosage: NADROPARIN SODIUM INJECTION SUBERIN
     Route: 058
     Dates: start: 20220524, end: 20220525
  21. FLEXBUMIN [Concomitant]
     Active Substance: ALBUMIN HUMAN
     Indication: Blood albumin decreased
     Dosage: UNK
     Route: 050
     Dates: start: 20220522, end: 20220523
  22. AMINO ACIDS NOS/FATS NOS/GLUCOSE [Concomitant]
     Indication: Nutritional supplementation
     Dosage: FAT EMULSION AMINO ACID 17 GLUCOSE 11% INJECTION
     Route: 050
     Dates: start: 20220522, end: 20220523
  23. MAGNESIUM SULFATE [Concomitant]
     Active Substance: MAGNESIUM SULFATE\MAGNESIUM SULFATE HEPTAHYDRATE
     Indication: Anticoagulant therapy
     Dosage: UNK
     Route: 050
     Dates: start: 20220527, end: 20220528
  24. POTASSIUM CHLORIDE [Concomitant]
     Active Substance: POTASSIUM CHLORIDE
     Indication: Mineral supplementation
     Dosage: UNK
     Route: 050
     Dates: start: 20220523, end: 20220523
  25. POTASSIUM CHLORIDE [Concomitant]
     Active Substance: POTASSIUM CHLORIDE
     Dosage: UNK
     Route: 050
     Dates: start: 20220527, end: 20220528
  26. INSULIN HUMAN [Concomitant]
     Active Substance: INSULIN HUMAN
     Indication: Hypoglycaemia
     Dosage: NOVO R
     Route: 050
     Dates: start: 20220527, end: 20220528
  27. METOCLOPRAMIDE HYDROCHLORIDE [Concomitant]
     Active Substance: METOCLOPRAMIDE HYDROCHLORIDE
     Indication: Nausea
     Dosage: UNK
     Route: 030
     Dates: start: 20220528, end: 20220603
  28. HEPARIN CALCIUM [Concomitant]
     Active Substance: HEPARIN CALCIUM
     Indication: Anticoagulant therapy
     Dosage: UNK
     Route: 058
     Dates: start: 20220528, end: 20220601
  29. CEFOPERAZONE SODIUM\SULBACTAM SODIUM [Concomitant]
     Active Substance: CEFOPERAZONE SODIUM\SULBACTAM SODIUM
     Indication: Anti-infective therapy
     Dosage: CEFOPERAZONE SODIUM FOR INJECTION, SULBACTAM SODIUM
     Route: 042
     Dates: start: 20220522, end: 20220523
  30. GLYCERIN\LECITHIN\MEDIUM-CHAIN TRIGLYCERIDES\SOYBEAN OIL [Concomitant]
     Active Substance: GLYCERIN\LECITHIN\MEDIUM-CHAIN TRIGLYCERIDES\SOYBEAN OIL
     Indication: Nutritional supplementation
     Dosage: UNK
     Route: 050
     Dates: start: 20220527, end: 20220528
  31. VITAMIN K1 [Concomitant]
     Active Substance: PHYTONADIONE
     Indication: Vitamin supplementation
     Dosage: UNK
     Route: 030
     Dates: start: 20220529, end: 20220601
  32. LINEZOLID [Concomitant]
     Active Substance: LINEZOLID
     Indication: Anti-infective therapy
     Dosage: UNK
     Route: 050
     Dates: start: 20220522, end: 20220523
  33. MEROPENEM [Concomitant]
     Active Substance: MEROPENEM
     Indication: Anti-infective therapy
     Dosage: UNK
     Route: 042
     Dates: start: 20220522, end: 20220523
  34. VANCOMYCIN HYDROCHLORIDE [Concomitant]
     Active Substance: VANCOMYCIN HYDROCHLORIDE
     Indication: Anti-infective therapy
     Dosage: UNK
     Route: 042
     Dates: start: 20220522, end: 20220523
  35. HERBALS\MENTHOL [Concomitant]
     Active Substance: HERBALS\MENTHOL
     Indication: Antiviral treatment
     Dosage: UNK
     Route: 048
     Dates: start: 20220522
  36. AMBROXOL HYDROCHLORIDE [Concomitant]
     Active Substance: AMBROXOL HYDROCHLORIDE
     Indication: Productive cough
     Dosage: UNK
     Route: 048
     Dates: start: 20220522
  37. CARBOCYSTEINE [Concomitant]
     Active Substance: CARBOCYSTEINE
     Indication: Productive cough
     Dosage: UNK
     Route: 048
     Dates: start: 20220522
  38. CLOPIDOGREL BISULFATE [Concomitant]
     Active Substance: CLOPIDOGREL BISULFATE
     Indication: Anticoagulant therapy
     Dosage: UNK
     Route: 048
     Dates: start: 20220522
  39. NIFEDIPINE [Concomitant]
     Active Substance: NIFEDIPINE
     Indication: Airway complication of anaesthesia
     Dosage: UNK
     Route: 060
     Dates: start: 20220523
  40. IBUPROFEN [Concomitant]
     Active Substance: IBUPROFEN
     Indication: Pyrexia
     Dosage: UNK, EXTENDED-RELEASE CAPSULES
     Route: 048
     Dates: start: 20220522
  41. DYPHYLLINE [Concomitant]
     Active Substance: DYPHYLLINE
     Indication: Asthma
     Dosage: DIHYDROXYPROPYL THEOPHYLLINE
     Route: 050
     Dates: start: 20220523, end: 20220523
  42. MIDAZOLAM [Concomitant]
     Active Substance: MIDAZOLAM
     Indication: Sedation
     Dosage: UNK
     Route: 042
     Dates: start: 20220523, end: 20220523
  43. NOREPINEPHRINE BITARTRATE [Concomitant]
     Active Substance: NOREPINEPHRINE BITARTRATE
     Indication: Hypotension
     Dosage: UNK
     Route: 042
     Dates: start: 20220523, end: 20220523
  44. AMINO ACIDS, SOURCE UNSPECIFIED [Concomitant]
     Active Substance: AMINO ACIDS, SOURCE UNSPECIFIED
     Dosage: COMPOUND AMINO ACID INJECTION 18 AA VSF
     Dates: start: 20220523, end: 20220523
  45. REMIFENTANIL HYDROCHLORIDE [Concomitant]
     Active Substance: REMIFENTANIL HYDROCHLORIDE
     Indication: Productive cough
     Dosage: UNK
     Route: 042
     Dates: start: 20220523, end: 20220523
  46. PROPOFOL [Concomitant]
     Active Substance: PROPOFOL
     Indication: Sedation
     Dosage: EMULSION INJECTION
     Route: 042
     Dates: start: 20220523, end: 20220523
  47. LIDOCAINE HYDROCHLORIDE [Concomitant]
     Active Substance: LIDOCAINE HYDROCHLORIDE
     Indication: Anaesthesia
     Dosage: UNK
     Route: 050
     Dates: start: 20220523, end: 20220523
  48. CALCIUM GLUCONATE [Concomitant]
     Active Substance: CALCIUM GLUCONATE
     Indication: Mineral supplementation
     Dosage: UNK
     Route: 050
     Dates: start: 20220523, end: 20220523
  49. FUROSEMIDE [Concomitant]
     Active Substance: FUROSEMIDE
     Indication: Polyuria
     Dosage: UNK
     Route: 042
     Dates: start: 20220524, end: 20220524
  50. BUTORPHANOL TARTRATE [Concomitant]
     Active Substance: BUTORPHANOL TARTRATE
     Indication: Analgesic therapy
     Dosage: UNK
     Route: 042
     Dates: start: 20220525, end: 20220525
  51. TORSEMIDE [Concomitant]
     Active Substance: TORSEMIDE
     Indication: Polyuria
     Dosage: UNK
     Route: 042
     Dates: start: 20220525, end: 20220525
  52. CLOSTRIDIUM BUTYRICUM SPORES STRAIN M-55 [Concomitant]
     Active Substance: CLOSTRIDIUM BUTYRICUM SPORES STRAIN M-55
     Indication: Dysbiosis
     Dosage: CLOSTRIDIUM BUTYRICUM VIABLE TABLETS, NASOGASTRIC
     Dates: start: 20220525
  53. ROCURONIUM BROMIDE [Concomitant]
     Active Substance: ROCURONIUM BROMIDE
     Indication: Muscle relaxant therapy
     Dosage: UNK
     Route: 042
     Dates: start: 20220526, end: 20220526
  54. URAPIDIL HYDROCHLORIDE [Concomitant]
     Active Substance: URAPIDIL HYDROCHLORIDE
     Indication: Airway complication of anaesthesia
     Dosage: UNK
     Route: 042
     Dates: start: 20220526, end: 20220526
  55. URAPIDIL HYDROCHLORIDE [Concomitant]
     Active Substance: URAPIDIL HYDROCHLORIDE
     Dosage: UNK
     Route: 042
     Dates: start: 20220601, end: 20220601
  56. GLYCERIN [Concomitant]
     Active Substance: GLYCERIN
     Indication: Laxative supportive care
     Dosage: UNK
     Route: 054
     Dates: start: 20220528, end: 20220528
  57. SODIUM BICARBONATE [Concomitant]
     Active Substance: SODIUM BICARBONATE
     Indication: Gastrooesophageal reflux disease
     Dosage: UNK
     Route: 050
     Dates: start: 20220530, end: 20220530
  58. NAFAMOSTAT MESYLATE [Concomitant]
     Active Substance: NAFAMOSTAT MESYLATE
     Indication: Anticoagulant therapy
     Dosage: UNK, NAMUMOSTAT MESYLATE FOR INJECTION
     Dates: start: 20220530, end: 20220530
  59. HEPARIN SODIUM [Concomitant]
     Active Substance: HEPARIN SODIUM
     Indication: Anticoagulant therapy
     Dosage: UNK
     Dates: start: 20220531, end: 20220531
  60. ERYTHROMYCIN [Concomitant]
     Active Substance: ERYTHROMYCIN
     Indication: Anti-infective therapy
     Dosage: ENTERIC-COATED CAPSULES, NASOGASTRIC
     Dates: start: 20220531, end: 20220531
  61. DEXMEDETOMIDINE HYDROCHLORIDE [Concomitant]
     Active Substance: DEXMEDETOMIDINE HYDROCHLORIDE
     Indication: Sedation
     Dosage: UNK
     Route: 042
     Dates: start: 20220601, end: 20220601

REACTIONS (1)
  - Overdose [Unknown]
